FAERS Safety Report 19974479 (Version 2)
Quarter: 2021Q4

REPORT INFORMATION
  Report Type: Spontaneous
  Country: DE (occurrence: DE)
  Receive Date: 20211020
  Receipt Date: 20211029
  Transmission Date: 20220303
  Serious: Yes (Other)
  Sender: FDA-Public Use
  Company Number: DE-PROCTER+GAMBLE-PH21007470

PATIENT
  Age: 65 Year
  Sex: Male
  Weight: 90 kg

DRUGS (26)
  1. PANTOZOL [Suspect]
     Active Substance: PANTOPRAZOLE SODIUM
     Dosage: 75 TABLET, 1 ONLY
     Route: 048
     Dates: start: 20210901, end: 20210901
  2. PANTOZOL [Suspect]
     Active Substance: PANTOPRAZOLE SODIUM
     Dosage: UNK UNK, QD
     Route: 048
     Dates: start: 20210901, end: 20210901
  3. AMLODIPINE BESYLATE [Suspect]
     Active Substance: AMLODIPINE BESYLATE
     Dosage: 25 TABLET 1 ONLY
     Route: 048
     Dates: start: 20210901, end: 20210901
  4. AMLODIPINE BESYLATE [Suspect]
     Active Substance: AMLODIPINE BESYLATE
     Dosage: UNK UNK, QD
     Route: 048
     Dates: start: 20210901, end: 20210901
  5. PANTOPRAZOLE SODIUM [Suspect]
     Active Substance: PANTOPRAZOLE SODIUM
     Dosage: UNK
     Route: 048
     Dates: start: 20210901, end: 20210901
  6. ACETAMINOPHEN [Suspect]
     Active Substance: ACETAMINOPHEN
     Dosage: UNK
     Route: 065
     Dates: start: 20210901, end: 20210901
  7. CANDESARTAN [Suspect]
     Active Substance: CANDESARTAN
     Dosage: 56 TABLET 1 ONLY
     Route: 048
     Dates: start: 20210901, end: 20210901
  8. CANDESARTAN [Suspect]
     Active Substance: CANDESARTAN
     Dosage: UNK UNK, QD
     Route: 048
     Dates: start: 20210901, end: 20210901
  9. ASPIRIN [Suspect]
     Active Substance: ASPIRIN
     Dosage: 160 TABLET 1 ONLY
     Route: 048
     Dates: start: 20210901, end: 20210901
  10. ASPIRIN [Suspect]
     Active Substance: ASPIRIN
     Dosage: UNK UNK, QD
     Route: 048
     Dates: start: 20210901, end: 20210901
  11. FOLIC ACID [Suspect]
     Active Substance: FOLIC ACID
     Dosage: 110 TABLET 1 ONLY
     Route: 048
     Dates: start: 20210901, end: 20210901
  12. FOLIC ACID [Suspect]
     Active Substance: FOLIC ACID
     Dosage: UNK UNK, QD
     Route: 048
     Dates: start: 20210901, end: 20210901
  13. SIMVASTATIN [Suspect]
     Active Substance: SIMVASTATIN
     Dosage: 175 TABLET 1 ONLY
     Route: 048
     Dates: start: 20210901, end: 20210901
  14. SIMVASTATIN [Suspect]
     Active Substance: SIMVASTATIN
     Dosage: UNK UNK, QD
     Route: 048
     Dates: start: 20210901, end: 20210901
  15. CHOLECALCIFEROL [Suspect]
     Active Substance: CHOLECALCIFEROL
     Dosage: 52 TABLET 1 ONLY
     Route: 048
     Dates: start: 20210901, end: 20210901
  16. CHOLECALCIFEROL [Suspect]
     Active Substance: CHOLECALCIFEROL
     Dosage: UNK UNK, QD
     Route: 048
     Dates: start: 20210901, end: 20210901
  17. METFORMIN HYDROCHLORIDE\SAXAGLIPTIN [Suspect]
     Active Substance: METFORMIN HYDROCHLORIDE\SAXAGLIPTIN
     Dosage: 7 TABLET 1 ONLY
     Route: 048
     Dates: start: 20210901, end: 20210901
  18. METFORMIN HYDROCHLORIDE\SAXAGLIPTIN [Suspect]
     Active Substance: METFORMIN HYDROCHLORIDE\SAXAGLIPTIN
     Dosage: UNK UNK, QD
     Route: 048
     Dates: start: 20210901, end: 20210901
  19. DAPAGLIFLOZIN [Suspect]
     Active Substance: DAPAGLIFLOZIN
     Dosage: 28 TABLET 1 ONLY
     Route: 048
     Dates: start: 20210901, end: 20210901
  20. DAPAGLIFLOZIN [Suspect]
     Active Substance: DAPAGLIFLOZIN
     Dosage: UNK UNK, QD
     Route: 048
     Dates: start: 20210901, end: 20210901
  21. ACETAMINOPHEN\CAFFEINE [Suspect]
     Active Substance: ACETAMINOPHEN\CAFFEINE
     Dosage: 20 TABLET 1 ONLY
     Route: 048
     Dates: start: 20210901, end: 20210901
  22. ACETAMINOPHEN\CAFFEINE [Suspect]
     Active Substance: ACETAMINOPHEN\CAFFEINE
     Dosage: UNK UNK, QD
     Route: 048
     Dates: start: 20210901, end: 20210901
  23. PREDNISOLONE [Suspect]
     Active Substance: PREDNISOLONE
     Dosage: 80 TABLET 1 ONLY
     Route: 048
     Dates: start: 20210901, end: 20210901
  24. PREDNISOLONE [Suspect]
     Active Substance: PREDNISOLONE
     Dosage: UNK UNK, QD
     Route: 048
     Dates: start: 20210901, end: 20210901
  25. HYDROCHLOROTHIAZIDE [Suspect]
     Active Substance: HYDROCHLOROTHIAZIDE
     Dosage: 90 TABLET 1 ONLY
     Route: 048
     Dates: start: 20210901, end: 20210901
  26. HYDROCHLOROTHIAZIDE [Suspect]
     Active Substance: HYDROCHLOROTHIAZIDE
     Dosage: UNK UNK, QD
     Route: 048
     Dates: start: 20210901, end: 20210901

REACTIONS (8)
  - Suicide attempt [Recovered/Resolved]
  - Intentional self-injury [Recovered/Resolved]
  - Intentional overdose [Recovered/Resolved]
  - Tachycardia [Recovered/Resolved]
  - Blood glucose increased [Recovered/Resolved]
  - Somnolence [Recovered/Resolved]
  - Heart rate increased [Recovered/Resolved]
  - Vomiting [Recovered/Resolved]

NARRATIVE: CASE EVENT DATE: 20210901
